FAERS Safety Report 13708777 (Version 1)
Quarter: 2017Q2

REPORT INFORMATION
  Report Type: Report from Study
  Country: US (occurrence: US)
  Receive Date: 20170630
  Receipt Date: 20170630
  Transmission Date: 20170830
  Serious: No
  Sender: FDA-Public Use
  Company Number: US-IPSEN BIOPHARMACEUTICALS, INC.-2016-03823

PATIENT
  Age: 24 Year
  Sex: Male
  Weight: 104.33 kg

DRUGS (3)
  1. SOMATULINE DEPOT [Suspect]
     Active Substance: LANREOTIDE ACETATE
     Indication: INSULIN-LIKE GROWTH FACTOR DECREASED
     Dosage: 120 MG
     Route: 058
     Dates: start: 2013, end: 201603
  2. OXYCODONE [Concomitant]
     Active Substance: OXYCODONE
     Indication: HEADACHE
  3. SOMATULINE DEPOT [Suspect]
     Active Substance: LANREOTIDE ACETATE
     Indication: PRODUCT USE IN UNAPPROVED INDICATION
     Dosage: 120 MG
     Route: 058
     Dates: start: 201603

REACTIONS (3)
  - Dyspepsia [Recovered/Resolved]
  - Dyspepsia [Not Recovered/Not Resolved]
  - Dyspepsia [Unknown]

NARRATIVE: CASE EVENT DATE: 20160318
